FAERS Safety Report 20382385 (Version 2)
Quarter: 2022Q1

REPORT INFORMATION
  Report Type: Spontaneous
  Country: US (occurrence: US)
  Receive Date: 20220127
  Receipt Date: 20220210
  Transmission Date: 20220424
  Serious: No
  Sender: FDA-Public Use
  Company Number: US-BEH-2022140639

PATIENT
  Sex: Male
  Weight: 100.68 kg

DRUGS (2)
  1. HIZENTRA [Suspect]
     Active Substance: HUMAN IMMUNOGLOBULIN G
     Indication: Immune thrombocytopenia
     Dosage: 20 GRAM, BIW
     Route: 058
     Dates: start: 202110
  2. HIZENTRA [Suspect]
     Active Substance: HUMAN IMMUNOGLOBULIN G
     Indication: Hypogammaglobulinaemia

REACTIONS (6)
  - Burning sensation [Unknown]
  - Injection site extravasation [Unknown]
  - No adverse event [Unknown]
  - Off label use [Unknown]
  - Pain [Unknown]
  - Weight increased [Unknown]
